FAERS Safety Report 26157647 (Version 1)
Quarter: 2025Q4

REPORT INFORMATION
  Report Type: Spontaneous
  Country: US (occurrence: None)
  Receive Date: 20251212
  Receipt Date: 20251212
  Transmission Date: 20260117
  Serious: Yes (Hospitalization)
  Sender: FDA-CTU
  Company Number: None

PATIENT
  Age: 71 Year
  Sex: Female

DRUGS (23)
  1. TYMLOS [Suspect]
     Active Substance: ABALOPARATIDE
     Indication: Osteoporosis
     Dosage: 80 UG DAILY SUBCUTANEOUS
     Route: 058
     Dates: start: 20251119
  2. PLAVIX [Concomitant]
     Active Substance: CLOPIDOGREL BISULFATE
  3. ALBUTEROL [Concomitant]
     Active Substance: ALBUTEROL
  4. AZELASTINE [Concomitant]
     Active Substance: AZELASTINE
  5. ASPIRIN [Concomitant]
     Active Substance: ASPIRIN
  6. DICYCLOMINE [Concomitant]
     Active Substance: DICYCLOMINE HYDROCHLORIDE
  7. LEXAPRO [Concomitant]
     Active Substance: ESCITALOPRAM OXALATE
  8. FAMOTIDINE [Concomitant]
     Active Substance: FAMOTIDINE
  9. FLONASE [Concomitant]
     Active Substance: FLUTICASONE PROPIONATE
  10. JANUVIA [Concomitant]
     Active Substance: SITAGLIPTIN PHOSPHATE
  11. LOSARTAN [Concomitant]
     Active Substance: LOSARTAN
  12. METAXALONE [Concomitant]
     Active Substance: METAXALONE
  13. montelukast + eliquis [Concomitant]
  14. pregabalin + albuterol nebulized [Concomitant]
  15. carfate + ipratropium inhaled solution [Concomitant]
  16. vitamin D3 + prednisone [Concomitant]
  17. cetirizine + cefdinir [Concomitant]
  18. furosemide + triamcinolone 0.5% [Concomitant]
  19. fluzone + Vancomycin [Concomitant]
  20. suprep + Gabapentin [Concomitant]
  21. benzonatate + clotrimazone 1% [Concomitant]
  22. zofran + ciclopiroz 0.77% [Concomitant]
  23. ELIQUIS [Suspect]
     Active Substance: APIXABAN

REACTIONS (9)
  - Bronchitis [None]
  - Sinusitis [None]
  - Malaise [None]
  - Skin mass [None]
  - Thrombosis [None]
  - Deep vein thrombosis [None]
  - Drug ineffective [None]
  - Polycythaemia vera [None]
  - Pain [None]

NARRATIVE: CASE EVENT DATE: 20251202
